FAERS Safety Report 7324645-4 (Version None)
Quarter: 2011Q1

REPORT INFORMATION
  Report Type: 
  Country: None (occurrence: None)
  Receive Date: 20110301
  Receipt Date: 20110217
  Transmission Date: 20110831
  Serious: Yes (Other)
  Sender: FDA-Public Use
  Company Number: PHHY2011CA12761

PATIENT
  Age: 3 Year
  Sex: Male

DRUGS (4)
  1. GANCICLOVIR [Concomitant]
     Dosage: UNK
  2. SULFAMETHOXAZOLE AND TRIMETHOPRIM [Suspect]
     Indication: PROPHYLAXIS
     Dosage: UNK
  3. PENICILLIN V [Concomitant]
     Dosage: UNK
  4. CORTICOSTEROIDS [Concomitant]
     Dosage: UNK

REACTIONS (7)
  - CYTOMEGALOVIRUS INFECTION [None]
  - SKIN PLAQUE [None]
  - LINEAR IGA DISEASE [None]
  - RASH MACULO-PAPULAR [None]
  - BLISTER [None]
  - ERYTHEMA MULTIFORME [None]
  - RASH [None]
